FAERS Safety Report 6613593-0 (Version None)
Quarter: 2010Q1

REPORT INFORMATION
  Report Type: 
  Country: None (occurrence: None)
  Receive Date: 20100304
  Receipt Date: 20100215
  Transmission Date: 20100710
  Serious: Yes (Death)
  Sender: FDA-Public Use
  Company Number: US-ROCHE-679670

PATIENT
  Sex: Male
  Weight: 89.4 kg

DRUGS (9)
  1. VALGANCICLOVIR HCL [Suspect]
     Indication: CYTOMEGALOVIRUS INFECTION
     Route: 065
     Dates: start: 20090709
  2. VALGANCICLOVIR HCL [Suspect]
     Dosage: AT 09:00 AM AND 09:00 PM
     Route: 065
     Dates: start: 20091005, end: 20091209
  3. PROGRAF [Concomitant]
     Indication: TRANSPLANT REJECTION
     Route: 048
     Dates: start: 20090331
  4. ASPIRIN [Concomitant]
     Indication: INFLAMMATION
     Route: 048
     Dates: start: 20090331
  5. INSULIN [Concomitant]
     Dosage: DAILY
     Route: 058
  6. NORVASC [Concomitant]
  7. COREG [Concomitant]
     Indication: BLOOD PRESSURE DECREASED
     Route: 048
  8. FISH OIL [Concomitant]
     Indication: INFLAMMATION
     Route: 048
  9. PRILOSEC [Concomitant]
     Route: 048

REACTIONS (2)
  - ARRHYTHMIA [None]
  - CARDIAC ARREST [None]
